FAERS Safety Report 14856730 (Version 1)
Quarter: 2018Q2

REPORT INFORMATION
  Report Type: Spontaneous
  Country: US (occurrence: US)
  Receive Date: 20180507
  Receipt Date: 20180507
  Transmission Date: 20180711
  Serious: No
  Sender: FDA-Public Use
  Company Number: US-ROCHE-2070902

PATIENT
  Sex: Female

DRUGS (8)
  1. TYLENOL [Concomitant]
     Active Substance: ACETAMINOPHEN
  2. ZANTAC [Concomitant]
     Active Substance: RANITIDINE HYDROCHLORIDE
  3. OMEPRAZOLE. [Concomitant]
     Active Substance: OMEPRAZOLE
  4. ESBRIET [Suspect]
     Active Substance: PIRFENIDONE
     Dosage: 3 TAB WITH MEAL
     Route: 048
  5. TRAMADOL HCL [Concomitant]
     Active Substance: TRAMADOL HYDROCHLORIDE
  6. VENTOLIN HFA [Concomitant]
     Active Substance: ALBUTEROL SULFATE
  7. ESBRIET [Suspect]
     Active Substance: PIRFENIDONE
     Dosage: 2 TAB, FOR WEEK
     Route: 048
  8. ESBRIET [Suspect]
     Active Substance: PIRFENIDONE
     Indication: IDIOPATHIC PULMONARY FIBROSIS
     Dosage: 1 TAB FOR WEEK
     Route: 048
     Dates: start: 20180101

REACTIONS (2)
  - Dysgeusia [Not Recovered/Not Resolved]
  - Weight decreased [Unknown]
